FAERS Safety Report 8313252-2 (Version None)
Quarter: 2012Q2

REPORT INFORMATION
  Report Type: 
  Country: None (occurrence: None)
  Receive Date: 20120424
  Receipt Date: 20120413
  Transmission Date: 20120825
  Serious: Yes (Hospitalization)
  Sender: FDA-Public Use
  Company Number: IPC201204-000176

PATIENT
  Age: 55 Year
  Sex: Female

DRUGS (1)
  1. METFORMIN HYDROCHLORIDE [Suspect]
     Indication: TYPE 2 DIABETES MELLITUS
     Dosage: 1000 MG THREE TIMES A DAY

REACTIONS (7)
  - RENAL FAILURE ACUTE [None]
  - CONTINUOUS HAEMODIAFILTRATION [None]
  - BLOOD PRESSURE IMMEASURABLE [None]
  - BODY TEMPERATURE DECREASED [None]
  - ELECTROCARDIOGRAM T WAVE PEAKED [None]
  - LACTIC ACIDOSIS [None]
  - DEPRESSED LEVEL OF CONSCIOUSNESS [None]
